FAERS Safety Report 15633419 (Version 1)
Quarter: 2018Q4

REPORT INFORMATION
  Report Type: Spontaneous
  Country: US (occurrence: US)
  Receive Date: 20181113
  Receipt Date: 20181113
  Transmission Date: 20190205
  Serious: Yes (Disabling, Other)
  Sender: FDA-Public Use
  Company Number: None

PATIENT
  Age: 67 Year
  Sex: Male
  Weight: 79.65 kg

DRUGS (14)
  1. NIACIN. [Concomitant]
     Active Substance: NIACIN
  2. MAGNESIUM [Concomitant]
     Active Substance: MAGNESIUM
  3. CIPRO [Suspect]
     Active Substance: CIPROFLOXACIN HYDROCHLORIDE
     Indication: PROSTATIC SPECIFIC ANTIGEN INCREASED
     Dosage: ?          QUANTITY:1 TABLET(S);?
     Route: 048
     Dates: start: 20181015, end: 20181019
  4. OMEGA 3 [Concomitant]
     Active Substance: OMEGA-3 FATTY ACIDS
  5. ASPIRIN 81 [Concomitant]
     Active Substance: ASPIRIN
  6. ANTIOXIDANT [Concomitant]
     Active Substance: UNSPECIFIED INGREDIENT
  7. FOLIC ACID. [Concomitant]
     Active Substance: FOLIC ACID
  8. LOSARTAN. [Concomitant]
     Active Substance: LOSARTAN
  9. ZINC. [Concomitant]
     Active Substance: ZINC
  10. LIPITOR [Concomitant]
     Active Substance: ATORVASTATIN CALCIUM
  11. METAPROLOL [Concomitant]
     Active Substance: METOPROLOL
  12. PLAVIX [Concomitant]
     Active Substance: CLOPIDOGREL BISULFATE
  13. VITAMIN B12 [Concomitant]
     Active Substance: CYANOCOBALAMIN
  14. THIAZIDE [Concomitant]
     Active Substance: UNSPECIFIED INGREDIENT

REACTIONS (2)
  - Ligament rupture [None]
  - Arthralgia [None]

NARRATIVE: CASE EVENT DATE: 20181017
